FAERS Safety Report 8190029-2 (Version None)
Quarter: 2012Q1

REPORT INFORMATION
  Report Type: 
  Country: None (occurrence: None)
  Receive Date: 20120305
  Receipt Date: 20120227
  Transmission Date: 20120608
  Serious: Yes (Other)
  Sender: FDA-Public Use
  Company Number: 2012MA002654

PATIENT
  Age: 73 Year
  Sex: Male

DRUGS (7)
  1. METOPROLOL SUCCINATE [Concomitant]
  2. ASPIRIN [Concomitant]
  3. WARFARIN SODIUM [Suspect]
     Dosage: 3 MG, QD
  4. DILTIAZEM HCL [Concomitant]
  5. OMEPRAZOLE [Concomitant]
  6. MICONAZOLE NITRATE [Suspect]
     Indication: PRODUCT USED FOR UNKNOWN INDICATION
     Dosage: 125 MG,QID, PO
     Route: 048
  7. ISOSORBIDE DINITRATE [Concomitant]

REACTIONS (2)
  - DRUG INTERACTION [None]
  - INTERNATIONAL NORMALISED RATIO INCREASED [None]
